FAERS Safety Report 13641205 (Version 1)
Quarter: 2017Q2

REPORT INFORMATION
  Report Type: Report from Study
  Country: None (occurrence: PT)
  Receive Date: 20170612
  Receipt Date: 20170612
  Transmission Date: 20170830
  Serious: Yes (Other)
  Sender: FDA-Public Use
  Company Number: PT-ABBVIE-17K-130-2002818-00

PATIENT
  Sex: Male

DRUGS (3)
  1. PENTASA [Concomitant]
     Active Substance: MESALAMINE
     Indication: CROHN^S DISEASE
     Dosage: UNKNOWN?BEFORE HUMIRA TREATMENT
     Route: 048
  2. HUMIRA [Suspect]
     Active Substance: ADALIMUMAB
     Indication: CROHN^S DISEASE
     Dosage: ON EVERY 15TH AND 30TH DAYS OF THE MONTH
     Route: 058
     Dates: start: 2016, end: 201705
  3. HUMIRA [Suspect]
     Active Substance: ADALIMUMAB
     Indication: CROHN^S DISEASE
     Dosage: FREQUENCY OF HUMIRA- ON EVERY 15TH AND 30TH DAYS OF THE MONTH
     Route: 058
     Dates: start: 20140901, end: 2016

REACTIONS (3)
  - Catheterisation cardiac [Recovered/Resolved]
  - Drug specific antibody present [Unknown]
  - Drug effect decreased [Unknown]

NARRATIVE: CASE EVENT DATE: 2017
